FAERS Safety Report 4435111-8 (Version None)
Quarter: 2004Q3

REPORT INFORMATION
  Report Type: 
  Country: None (occurrence: None)
  Receive Date: 20040826
  Receipt Date: 20040826
  Transmission Date: 20050211
  Serious: No
  Sender: FDA-Public Use
  Company Number: None

PATIENT
  Age: 33 Year
  Sex: Female
  Weight: 72.5755 kg

DRUGS (1)
  1. LUPRON [Suspect]
     Indication: ENDOMETRIOSIS
     Dosage: ONCE A MON SUBCUTANEOUS
     Route: 058
     Dates: start: 19960601, end: 19960701

REACTIONS (5)
  - AMNESIA [None]
  - DIZZINESS [None]
  - INSOMNIA [None]
  - PALPITATIONS [None]
  - WEIGHT INCREASED [None]
